FAERS Safety Report 9338727 (Version 1)
Quarter: 2013Q2

REPORT INFORMATION
  Report Type: Spontaneous
  Country: US (occurrence: None)
  Receive Date: 20130605
  Receipt Date: 20130605
  Transmission Date: 20140414
  Serious: No
  Sender: FDA-Public Use
  Company Number: None

PATIENT
  Age: 46 Year
  Sex: Female
  Weight: 74.39 kg

DRUGS (1)
  1. AZITHROMYCIN [Suspect]
     Indication: INFECTION
     Route: 048
     Dates: start: 20130601, end: 20130603

REACTIONS (6)
  - Diarrhoea [None]
  - Dizziness [None]
  - Nervousness [None]
  - Decreased appetite [None]
  - Malaise [None]
  - Body temperature decreased [None]
